FAERS Safety Report 7944071-4 (Version None)
Quarter: 2011Q4

REPORT INFORMATION
  Report Type: 
  Country: None (occurrence: None)
  Receive Date: 20111128
  Receipt Date: 20111119
  Transmission Date: 20120403
  Serious: Yes (Other)
  Sender: FDA-Public Use
  Company Number: BR-ASTRAZENECA-2011SE70726

PATIENT
  Age: 70 Year
  Sex: Male

DRUGS (2)
  1. ATACAND HCT [Suspect]
     Dosage: 16/12.5 MG
     Route: 048
  2. CRESTOR [Suspect]
     Route: 048

REACTIONS (1)
  - RENAL CYST [None]
